FAERS Safety Report 5787020-X (Version None)
Quarter: 2008Q2

REPORT INFORMATION
  Report Type: 
  Country: None (occurrence: None)
  Receive Date: 20080625
  Receipt Date: 20080620
  Transmission Date: 20081010
  Serious: Yes (Death, Hospitalization, Other)
  Sender: FDA-Public Use
  Company Number: BR-BAYER-200812591LA

PATIENT
  Age: 52 Year
  Sex: Female

DRUGS (1)
  1. BETAFERON [Suspect]
     Indication: MULTIPLE SCLEROSIS
     Route: 058
     Dates: start: 20070801, end: 20071101

REACTIONS (4)
  - BONE MARROW FAILURE [None]
  - FUNGAL SEPSIS [None]
  - INFECTION [None]
  - PNEUMONIA FUNGAL [None]
